FAERS Safety Report 22388826 (Version 2)
Quarter: 2023Q2

REPORT INFORMATION
  Report Type: Report from Study
  Country: FR (occurrence: FR)
  Receive Date: 20230531
  Receipt Date: 20230613
  Transmission Date: 20230721
  Serious: Yes (Hospitalization)
  Sender: FDA-Public Use
  Company Number: FR-JNJFOC-20230556030

PATIENT
  Age: 61 Year
  Sex: Male
  Weight: 69 kg

DRUGS (16)
  1. DARATUMUMAB [Suspect]
     Active Substance: DARATUMUMAB
     Indication: Plasma cell myeloma
     Route: 058
     Dates: start: 20191021, end: 20221006
  2. BORTEZOMIB [Concomitant]
     Active Substance: BORTEZOMIB
     Indication: Plasma cell myeloma
     Route: 058
     Dates: start: 20191021, end: 20200615
  3. DEXAMETHASONE [Concomitant]
     Active Substance: DEXAMETHASONE
     Indication: Plasma cell myeloma
     Route: 048
     Dates: start: 20191021, end: 20200616
  4. AMOXICILLIN [Concomitant]
     Active Substance: AMOXICILLIN
     Indication: Antibiotic prophylaxis
     Route: 048
     Dates: start: 20191021
  5. OMEPRAZOLE [Concomitant]
     Active Substance: OMEPRAZOLE
     Indication: Abdominal pain upper
     Route: 048
     Dates: start: 20191021
  6. MOVICOL [Concomitant]
     Active Substance: POLYETHYLENE GLYCOL 3350\POTASSIUM CHLORIDE\SODIUM BICARBONATE\SODIUM CHLORIDE
     Indication: Constipation prophylaxis
     Dates: start: 20191021
  7. ZOMETA [Concomitant]
     Active Substance: ZOLEDRONIC ACID
     Indication: Musculoskeletal chest pain
     Route: 042
  8. VALACYCLOVIR HYDROCHLORIDE [Concomitant]
     Active Substance: VALACYCLOVIR HYDROCHLORIDE
     Indication: Antiviral prophylaxis
     Dates: start: 20191021
  9. PENTACARINAT [Concomitant]
     Active Substance: PENTAMIDINE ISETHIONATE
     Indication: Bacteraemia
     Dosage: POWDER
     Dates: start: 20200709
  10. PREGABALIN [Concomitant]
     Active Substance: PREGABALIN
     Indication: Peripheral sensory neuropathy
     Dosage: 100-175 MG
     Route: 048
     Dates: start: 20201028
  11. AZOPT [Concomitant]
     Active Substance: BRINZOLAMIDE
     Indication: Intraocular pressure increased
     Route: 047
  12. ELIQUIS [Concomitant]
     Active Substance: APIXABAN
     Indication: Anticoagulant therapy
     Route: 048
     Dates: start: 20210813
  13. SYMBICORT [Concomitant]
     Active Substance: BUDESONIDE\FORMOTEROL FUMARATE DIHYDRATE
     Indication: Cough
     Dates: start: 20211018
  14. EBASTINE [Concomitant]
     Active Substance: EBASTINE
     Indication: Cough
     Route: 048
     Dates: start: 20211018
  15. ECONAZOLE [Concomitant]
     Active Substance: ECONAZOLE
     Indication: Rash
  16. ECONAZOLE [Concomitant]
     Active Substance: ECONAZOLE
     Indication: Pruritus

REACTIONS (1)
  - Pneumonia haemophilus [Recovered/Resolved]

NARRATIVE: CASE EVENT DATE: 20230507
